FAERS Safety Report 21924310 (Version 1)
Quarter: 2023Q1

REPORT INFORMATION
  Report Type: Spontaneous
  Country: TW (occurrence: TW)
  Receive Date: 20230130
  Receipt Date: 20230130
  Transmission Date: 20230418
  Serious: Yes (Other)
  Sender: FDA-Public Use
  Company Number: TW-SUN PHARMACEUTICAL INDUSTRIES LTD-2023R1-375363

PATIENT
  Age: 49 Year
  Sex: Female
  Weight: 62 kg

DRUGS (8)
  1. FENTANYL [Suspect]
     Active Substance: FENTANYL
     Indication: General anaesthesia
     Dosage: UNK (100 UG)
     Route: 065
  2. MORPHINE [Suspect]
     Active Substance: MORPHINE
     Indication: Analgesic therapy
     Dosage: UNK (5 MG)
     Route: 042
  3. MORPHINE [Suspect]
     Active Substance: MORPHINE
     Indication: Pain
  4. PROPOFOL [Suspect]
     Active Substance: PROPOFOL
     Indication: General anaesthesia
     Dosage: UNK (140 MG)
     Route: 065
  5. ROCURONIUM [Suspect]
     Active Substance: ROCURONIUM BROMIDE
     Indication: General anaesthesia
     Dosage: UNK (50 MG)
     Route: 065
  6. SUGAMMADEX [Suspect]
     Active Substance: SUGAMMADEX
     Indication: Muscle relaxant therapy
     Dosage: UNK (200 MG)
     Route: 065
  7. DESFLURANE [Suspect]
     Active Substance: DESFLURANE
     Indication: General anaesthesia
     Dosage: UNK
     Route: 065
  8. LIDOCAINE [Suspect]
     Active Substance: LIDOCAINE
     Indication: General anaesthesia
     Dosage: UNK (2%, 40 MG)
     Route: 065

REACTIONS (8)
  - Hyperthermia malignant [Recovered/Resolved]
  - Respiration abnormal [Recovered/Resolved]
  - Hypertension [Recovered/Resolved]
  - Tachycardia [Recovered/Resolved]
  - Unresponsive to stimuli [Recovered/Resolved]
  - Body temperature increased [Recovered/Resolved]
  - Muscle spasms [Recovered/Resolved]
  - Muscle rigidity [Recovered/Resolved]
